FAERS Safety Report 12890668 (Version 1)
Quarter: 2016Q4

REPORT INFORMATION
  Report Type: Spontaneous
  Country: US (occurrence: US)
  Receive Date: 20161027
  Receipt Date: 20161027
  Transmission Date: 20170207
  Serious: No
  Sender: FDA-Public Use
  Company Number: US-JAZZ-2016-US-015805

PATIENT
  Age: 63 Year
  Sex: Female

DRUGS (48)
  1. XYREM [Suspect]
     Active Substance: SODIUM OXYBATE
     Dosage: 5 G, QD
     Route: 048
     Dates: start: 201406, end: 201407
  2. VICODIN [Concomitant]
     Active Substance: ACETAMINOPHEN\HYDROCODONE BITARTRATE
  3. GABAPENTIN. [Concomitant]
     Active Substance: GABAPENTIN
  4. GLYBURIDE. [Concomitant]
     Active Substance: GLYBURIDE
  5. ZANTAC [Concomitant]
     Active Substance: RANITIDINE HYDROCHLORIDE
  6. LYRICA [Concomitant]
     Active Substance: PREGABALIN
  7. CARVEDILOL. [Concomitant]
     Active Substance: CARVEDILOL
  8. MAGNESIUM OXIDE. [Concomitant]
     Active Substance: MAGNESIUM OXIDE
  9. VITAMIN B COMPLEX [Concomitant]
     Active Substance: CYANOCOBALAMIN\DEXPANTHENOL\NIACINAMIDE\PYRIDOXINE HYDROCHLORIDE\RIBOFLAVIN 5^-PHOSPHATE SODIUM\THIAMINE HYDROCHLORIDE\VITAMIN B COMPLEX
  10. VITAMIN B12 [Concomitant]
     Active Substance: CYANOCOBALAMIN
  11. DETROL [Concomitant]
     Active Substance: TOLTERODINE TARTRATE
  12. NEURONTIN [Concomitant]
     Active Substance: GABAPENTIN
  13. XYREM [Suspect]
     Active Substance: SODIUM OXYBATE
     Dosage: 3 G, SECOND DOSE
     Route: 048
     Dates: start: 201407, end: 201502
  14. ACTOS [Concomitant]
     Active Substance: PIOGLITAZONE HYDROCHLORIDE
  15. CYMBALTA [Concomitant]
     Active Substance: DULOXETINE HYDROCHLORIDE
  16. LANTUS [Concomitant]
     Active Substance: INSULIN GLARGINE
  17. XYREM [Suspect]
     Active Substance: SODIUM OXYBATE
     Dosage: 4 G, QD
     Route: 048
     Dates: start: 201512
  18. TRADJENTA [Concomitant]
     Active Substance: LINAGLIPTIN
  19. ISOSORBIDE MONONITRATE. [Concomitant]
     Active Substance: ISOSORBIDE MONONITRATE
  20. NOVOLIN N [Concomitant]
     Active Substance: INSULIN HUMAN
  21. Z-BEC [Concomitant]
     Active Substance: CYANOCOBALAMIN\DEXPANTHENOL\NIACINAMIDE\PYRIDOXINE HYDROCHLORIDE\RIBOFLAVIN 5^-PHOSPHATE SODIUM\THIAMINE HYDROCHLORIDE\VITAMIN B COMPLEX
  22. PROVIGIL [Concomitant]
     Active Substance: MODAFINIL
  23. NITROGLYCERIN. [Concomitant]
     Active Substance: NITROGLYCERIN
  24. MULTIVITAMINS [Concomitant]
     Active Substance: VITAMINS
  25. ANUCORT-HC [Concomitant]
     Active Substance: HYDROCORTISONE ACETATE
  26. PLAVIX [Concomitant]
     Active Substance: CLOPIDOGREL BISULFATE
  27. SPIRONOLACTONE. [Concomitant]
     Active Substance: SPIRONOLACTONE
  28. VITAMIN C [Concomitant]
     Active Substance: ASCORBIC ACID
  29. XYREM [Suspect]
     Active Substance: SODIUM OXYBATE
     Dosage: DOSE ADJUSTMENTS
     Route: 048
     Dates: start: 2008, end: 2009
  30. XYREM [Suspect]
     Active Substance: SODIUM OXYBATE
     Dosage: 3.5 G, BID
     Route: 048
     Dates: start: 200902, end: 2010
  31. XYREM [Suspect]
     Active Substance: SODIUM OXYBATE
     Dosage: 4G, FIRST DOSE
     Route: 048
     Dates: start: 201509, end: 201512
  32. POLYETHYLENE GLYCOL [Concomitant]
     Active Substance: POLYETHYLENE GLYCOLS
  33. CRESTOR [Concomitant]
     Active Substance: ROSUVASTATIN CALCIUM
  34. PEPCID AC [Concomitant]
     Active Substance: FAMOTIDINE
  35. XYREM [Suspect]
     Active Substance: SODIUM OXYBATE
     Indication: NARCOLEPSY
     Dosage: 2.25 G, BID
     Route: 048
     Dates: start: 200809, end: 200810
  36. XYREM [Suspect]
     Active Substance: SODIUM OXYBATE
     Dosage: 3 G, SECOND DOSE
     Route: 048
     Dates: start: 201509, end: 201512
  37. ALEVE [Concomitant]
     Active Substance: NAPROXEN SODIUM
  38. VALACYCLOVIR HCL [Concomitant]
     Active Substance: VALACYCLOVIR HYDROCHLORIDE
  39. ASPIRIN BUFFERED [Concomitant]
     Active Substance: ASPIRIN
  40. CALCIUM CITRATE [Concomitant]
     Active Substance: CALCIUM CITRATE
  41. FISH OIL [Concomitant]
     Active Substance: FISH OIL
  42. VITAMIN E [Concomitant]
     Active Substance: .ALPHA.-TOCOPHEROL
  43. XYREM [Suspect]
     Active Substance: SODIUM OXYBATE
     Dosage: 4 G, FIRST DOSE
     Route: 048
     Dates: start: 201407, end: 201502
  44. GLIPIZIDE. [Concomitant]
     Active Substance: GLIPIZIDE
  45. CELEBREX [Concomitant]
     Active Substance: CELECOXIB
  46. FENTANYL. [Concomitant]
     Active Substance: FENTANYL
  47. LASIX [Concomitant]
     Active Substance: FUROSEMIDE
  48. VITAMIN D [Concomitant]
     Active Substance: CHOLECALCIFEROL

REACTIONS (1)
  - Hyperparathyroidism [Unknown]

NARRATIVE: CASE EVENT DATE: 201510
